FAERS Safety Report 10474532 (Version 1)
Quarter: 2014Q3

REPORT INFORMATION
  Report Type: Report from Study
  Country: US (occurrence: US)
  Receive Date: 20140924
  Receipt Date: 20140924
  Transmission Date: 20150326
  Serious: Yes (Other)
  Sender: FDA-Public Use
  Company Number: US-ALEXION PHARMACEUTICALS INC-A200800790

PATIENT
  Sex: Male

DRUGS (2)
  1. SOLIRIS [Suspect]
     Active Substance: ECULIZUMAB
     Indication: PAROXYSMAL NOCTURNAL HAEMOGLOBINURIA
     Dosage: UNK, SINGLE
     Route: 042
     Dates: start: 20120816, end: 20120816
  2. SOLIRIS [Suspect]
     Active Substance: ECULIZUMAB
     Dosage: UNK, SINGLE
     Route: 042
     Dates: start: 20120828, end: 20120828

REACTIONS (3)
  - Nasopharyngitis [Unknown]
  - Transfusion [Not Recovered/Not Resolved]
  - Haemoglobin decreased [Not Recovered/Not Resolved]
